FAERS Safety Report 25067122 (Version 1)
Quarter: 2025Q1

REPORT INFORMATION
  Report Type: Spontaneous
  Country: PL (occurrence: PL)
  Receive Date: 20250312
  Receipt Date: 20250312
  Transmission Date: 20250409
  Serious: Yes (Hospitalization)
  Sender: INDOCO REMEDIES LIMITED
  Company Number: PL-MLMSERVICE-20250220-PI424126-00029-2

PATIENT
  Age: 26 Year
  Sex: Female

DRUGS (16)
  1. CETIRIZINE HYDROCHLORIDE [Suspect]
     Active Substance: CETIRIZINE HYDROCHLORIDE
     Indication: Persistent genital arousal disorder
     Route: 065
  2. AMOXICILLIN\CLAVULANIC ACID [Suspect]
     Active Substance: AMOXICILLIN\CLAVULANIC ACID
     Indication: Persistent genital arousal disorder
     Route: 065
  3. ALPRAZOLAM [Suspect]
     Active Substance: ALPRAZOLAM
     Indication: Persistent genital arousal disorder
     Dosage: 0.5 MG 3 TIMES A DAY (3 MULTIPLICATION 0.5 MG)
     Route: 065
  4. CIPROFLOXACIN [Suspect]
     Active Substance: CIPROFLOXACIN
     Indication: Persistent genital arousal disorder
     Route: 065
  5. CLOTRIMAZOLE [Suspect]
     Active Substance: CLOTRIMAZOLE
     Indication: Persistent genital arousal disorder
     Route: 067
  6. FLUCONAZOLE [Suspect]
     Active Substance: FLUCONAZOLE
     Indication: Persistent genital arousal disorder
     Route: 048
  7. FURAZIDINE [Suspect]
     Active Substance: FURAZIDINE
     Indication: Persistent genital arousal disorder
     Route: 065
  8. GENTAMICIN [Suspect]
     Active Substance: GENTAMICIN
     Indication: Persistent genital arousal disorder
     Route: 065
  9. HYDROXYZINE [Suspect]
     Active Substance: HYDROXYZINE HYDROCHLORIDE
     Indication: Persistent genital arousal disorder
     Route: 065
  10. IBUPROFEN [Suspect]
     Active Substance: IBUPROFEN
     Indication: Persistent genital arousal disorder
     Route: 065
  11. ACETAMINOPHEN\CODEINE PHOSPHATE [Suspect]
     Active Substance: ACETAMINOPHEN\CODEINE PHOSPHATE
     Indication: Persistent genital arousal disorder
     Route: 065
  12. ACETAMINOPHEN [Suspect]
     Active Substance: ACETAMINOPHEN
     Indication: Persistent genital arousal disorder
     Route: 065
  13. NATAMYCIN [Suspect]
     Active Substance: NATAMYCIN
     Indication: Persistent genital arousal disorder
     Route: 067
  14. TIANEPTINE [Suspect]
     Active Substance: TIANEPTINE
     Indication: Persistent genital arousal disorder
     Route: 065
  15. SERTRALINE [Concomitant]
     Active Substance: SERTRALINE HYDROCHLORIDE
     Indication: Depression
     Dosage: 50 MG ONCE A DAY
     Route: 065
  16. SERTRALINE [Concomitant]
     Active Substance: SERTRALINE HYDROCHLORIDE
     Dosage: 100 MG ONCE A DAY
     Route: 065

REACTIONS (2)
  - Persistent genital arousal disorder [Recovered/Resolved]
  - Condition aggravated [Recovered/Resolved]
